FAERS Safety Report 10097998 (Version 1)
Quarter: 2014Q2

REPORT INFORMATION
  Report Type: Spontaneous
  Country: US (occurrence: US)
  Receive Date: 20140423
  Receipt Date: 20140423
  Transmission Date: 20141212
  Serious: Yes (Other)
  Sender: FDA-Public Use
  Company Number: US-ROCHE-1382193

PATIENT
  Sex: Female

DRUGS (1)
  1. CELLCEPT [Suspect]
     Indication: RENAL TRANSPLANT
     Route: 065
     Dates: start: 2004

REACTIONS (6)
  - Arterial occlusive disease [Unknown]
  - Pain in extremity [Unknown]
  - Malaise [Unknown]
  - Skin discolouration [Unknown]
  - Gangrene [Unknown]
  - Renal impairment [Unknown]
